FAERS Safety Report 11160767 (Version 1)
Quarter: 2015Q2

REPORT INFORMATION
  Report Type: Spontaneous
  Country: US (occurrence: US)
  Receive Date: 20150604
  Receipt Date: 20150604
  Transmission Date: 20150821
  Serious: No
  Sender: FDA-Public Use
  Company Number: US-SA-2014SA062515

PATIENT
  Age: 76 Year
  Sex: Male

DRUGS (3)
  1. LANTUS SOLOSTAR [Suspect]
     Active Substance: INSULIN GLARGINE
     Indication: TYPE 2 DIABETES MELLITUS
     Dosage: DOSE:10 UNIT(S)
     Route: 065
     Dates: start: 201402
  2. NOVOLOG [Concomitant]
     Active Substance: INSULIN ASPART
     Dosage: 3 U WITH EACH MEAL DOSE:3 UNIT(S)
  3. SOLOSTAR [Concomitant]
     Active Substance: DEVICE

REACTIONS (1)
  - Blood glucose decreased [Recovered/Resolved]
